FAERS Safety Report 4583719-1 (Version None)
Quarter: 2005Q1

REPORT INFORMATION
  Report Type: 
  Country: None (occurrence: None)
  Receive Date: 20050216
  Receipt Date: 20050126
  Transmission Date: 20050727
  Serious: Yes (Hospitalization)
  Sender: FDA-Public Use
  Company Number: JP-BRISTOL-MYERS SQUIBB COMPANY-12860698

PATIENT
  Age: 28 Year
  Sex: Female

DRUGS (2)
  1. IFOMIDE [Suspect]
     Indication: ALVEOLAR SOFT PART SARCOMA
     Dosage: ADDITIONAL DOSING: 12- TO 14-JAN-1994
     Route: 041
     Dates: start: 19931213, end: 19931215
  2. VEPESID [Suspect]
     Indication: ALVEOLAR SOFT PART SARCOMA
     Dosage: ADDITIONAL DOSING: 12- TO 14-JAN-1994
     Route: 041
     Dates: start: 19931213, end: 19931215

REACTIONS (12)
  - ABNORMAL BEHAVIOUR [None]
  - DEPRESSED LEVEL OF CONSCIOUSNESS [None]
  - DIZZINESS [None]
  - DYSKINESIA [None]
  - ENCEPHALOPATHY [None]
  - HALLUCINATION [None]
  - HYPOACUSIS [None]
  - NIGHTMARE [None]
  - SOLILOQUY [None]
  - SOMNOLENCE [None]
  - TINNITUS [None]
  - TREMOR [None]
